FAERS Safety Report 4860189-7 (Version None)
Quarter: 2005Q4

REPORT INFORMATION
  Report Type: 
  Country: None (occurrence: None)
  Receive Date: 20051214
  Receipt Date: 20051202
  Transmission Date: 20060501
  Serious: Yes (Hospitalization, Other)
  Sender: FDA-Public Use
  Company Number: KII-2005-0020147

PATIENT
  Age: 32 Year
  Sex: Female

DRUGS (6)
  1. MORPHINE SULFATE [Suspect]
     Indication: BACK PAIN
     Dosage: UNK, ORAL
     Route: 048
  2. CLONIDINE [Suspect]
     Dosage: UNK, ORAL
     Route: 048
  3. PROMETHAZINE [Suspect]
     Dosage: UNK, ORAL
     Route: 048
  4. CHLORAL HYDRATE (CHLORAL HYDRATE) [Suspect]
     Indication: SLEEP DISORDER
     Dosage: UNK, ORAL
     Route: 048
     Dates: start: 20051101
  5. VALPROIC ACID [Suspect]
     Dosage: UNK, ORAL
     Route: 048
  6. THYROID HORMONES () [Suspect]
     Dosage: UNK, ORAL
     Route: 048

REACTIONS (13)
  - APNOEA [None]
  - BLOOD PRESSURE INCREASED [None]
  - CSF PRESSURE INCREASED [None]
  - CSF TEST ABNORMAL [None]
  - DRUG DEPENDENCE [None]
  - ELECTROCARDIOGRAM PR SHORTENED [None]
  - HALLUCINATION [None]
  - MULTIPLE DRUG OVERDOSE [None]
  - MYDRIASIS [None]
  - NUCLEAR MAGNETIC RESONANCE IMAGING ABNORMAL [None]
  - SINUS BRADYCARDIA [None]
  - SOMNOLENCE [None]
  - THERAPY NON-RESPONDER [None]
